FAERS Safety Report 19680207 (Version 1)
Quarter: 2021Q3

REPORT INFORMATION
  Report Type: Spontaneous
  Country: US (occurrence: US)
  Receive Date: 20210810
  Receipt Date: 20210810
  Transmission Date: 20211014
  Serious: Yes (Other)
  Sender: FDA-Public Use
  Company Number: US-GLASSHOUSE PHARMACEUTICALS LIMITED CA-2021GLH00003

PATIENT
  Age: 66 Year
  Sex: Male

DRUGS (1)
  1. CLINDAMYCIN. [Suspect]
     Active Substance: CLINDAMYCIN
     Indication: DENTAL CARE
     Dosage: 300 MG
     Route: 048

REACTIONS (3)
  - Oesophagitis [Recovering/Resolving]
  - Chemical burn [Recovering/Resolving]
  - Laryngitis [Recovering/Resolving]
